FAERS Safety Report 10227389 (Version 1)
Quarter: 2014Q2

REPORT INFORMATION
  Report Type: Spontaneous
  Country: US (occurrence: None)
  Receive Date: 20140609
  Receipt Date: 20140609
  Transmission Date: 20141212
  Serious: Yes (Life-Threatening)
  Sender: FDA-Public Use
  Company Number: None

PATIENT
  Age: 58 Year
  Sex: Male
  Weight: 69 kg

DRUGS (3)
  1. XARELTO 20 MG JANSSEN [Suspect]
     Indication: PULMONARY EMBOLISM
     Route: 048
     Dates: start: 20131202, end: 20131211
  2. XARELTO 20 MG JANSSEN [Suspect]
     Indication: DEEP VEIN THROMBOSIS
     Route: 048
     Dates: start: 20131202, end: 20131211
  3. METHYLPREDNISOLONE [Concomitant]

REACTIONS (1)
  - Gastrointestinal haemorrhage [None]
